FAERS Safety Report 17050149 (Version 1)
Quarter: 2019Q4

REPORT INFORMATION
  Report Type: Spontaneous
  Country: US (occurrence: US)
  Receive Date: 20191119
  Receipt Date: 20191119
  Transmission Date: 20200122
  Serious: Yes (Other)
  Sender: FDA-Public Use
  Company Number: US-TEVA-2019-US-1139072

PATIENT
  Sex: Female
  Weight: 63.5 kg

DRUGS (2)
  1. PROVIGIL [Suspect]
     Active Substance: MODAFINIL
     Route: 065
  2. BACLOFEN. [Suspect]
     Active Substance: BACLOFEN
     Route: 065

REACTIONS (2)
  - Confusional state [Unknown]
  - Hallucination [Unknown]
